FAERS Safety Report 5829691-5 (Version None)
Quarter: 2008Q3

REPORT INFORMATION
  Report Type: 
  Country: None (occurrence: None)
  Receive Date: 20080731
  Receipt Date: 20080731
  Transmission Date: 20090109
  Serious: No
  Sender: FDA-Public Use
  Company Number: None

PATIENT
  Sex: Male

DRUGS (1)
  1. AMARYL [Suspect]
     Dosage: ONE PO QD
     Route: 048

REACTIONS (2)
  - HYPERGLYCAEMIA [None]
  - TRANSIENT ISCHAEMIC ATTACK [None]
